FAERS Safety Report 7999461-0 (Version None)
Quarter: 2011Q4

REPORT INFORMATION
  Report Type: 
  Country: None (occurrence: None)
  Receive Date: 20111221
  Receipt Date: 20111220
  Transmission Date: 20120403
  Serious: No
  Sender: FDA-Public Use
  Company Number: US-PFIZER INC-2011309308

PATIENT
  Sex: Female
  Weight: 90.703 kg

DRUGS (2)
  1. IBUPROFEN (ADVIL) [Suspect]
     Indication: UTERINE HAEMORRHAGE
     Dosage: UNK
     Route: 048
     Dates: start: 20111213, end: 20111220
  2. VITAMIN C [Concomitant]

REACTIONS (6)
  - BLOOD GLUCOSE DECREASED [None]
  - GASTROINTESTINAL TRACT IRRITATION [None]
  - MALAISE [None]
  - ABDOMINAL PAIN [None]
  - ABDOMINAL DISTENSION [None]
  - BLISTER [None]
